FAERS Safety Report 8957789 (Version 2)
Quarter: 2013Q1

REPORT INFORMATION
  Report Type: Spontaneous
  Country: US (occurrence: US)
  Receive Date: 20121211
  Receipt Date: 20130125
  Transmission Date: 20140127
  Serious: Yes (Hospitalization)
  Sender: FDA-Public Use
  Company Number: US-ELI_LILLY_AND_COMPANY-US201212000393

PATIENT
  Sex: Female

DRUGS (12)
  1. FORTEO [Suspect]
     Indication: OSTEOPOROSIS
     Dosage: 20 UG, QD
     Dates: start: 201209
  2. RANEXA [Concomitant]
  3. NEXIUM [Concomitant]
  4. AMITIZA [Concomitant]
  5. CELEXA [Concomitant]
  6. BACLOFEN [Concomitant]
  7. TOPROL [Concomitant]
  8. ESTRADIOL [Concomitant]
  9. HYDROCHLOROTHIAZIDE [Concomitant]
  10. COUMADIN [Concomitant]
  11. TRAZODONE [Concomitant]
  12. STOOL SOFTENER [Concomitant]

REACTIONS (1)
  - Nerve compression [Not Recovered/Not Resolved]
